FAERS Safety Report 9967206 (Version 1)
Quarter: 2014Q1

REPORT INFORMATION
  Report Type: Report from Study
  Country: PR (occurrence: PR)
  Receive Date: 20140305
  Receipt Date: 20140305
  Transmission Date: 20141002
  Serious: No
  Sender: FDA-Public Use
  Company Number: PR-ABBVIE-13P-131-1146447-00

PATIENT
  Sex: Female

DRUGS (1)
  1. HUMIRA [Suspect]
     Indication: PSORIATIC ARTHROPATHY

REACTIONS (6)
  - Weight increased [Unknown]
  - Pain [Unknown]
  - Inflammation [Unknown]
  - Local swelling [Unknown]
  - Local swelling [Unknown]
  - Local swelling [Unknown]
